FAERS Safety Report 5025048-8 (Version None)
Quarter: 2006Q2

REPORT INFORMATION
  Report Type: 
  Country: None (occurrence: None)
  Receive Date: 20060608
  Receipt Date: 20060608
  Transmission Date: 20061013
  Serious: Yes (Life-Threatening, Hospitalization)
  Sender: FDA-Public Use
  Company Number: None

PATIENT
  Age: 58 Year
  Sex: Male
  Weight: 81.4 kg

DRUGS (6)
  1. GLYBURIDE [Suspect]
     Indication: BLOOD GLUCOSE INCREASED
     Dosage: 1.25 MG PO ONCE
     Route: 048
     Dates: start: 20060128
  2. SEVELAMER [Concomitant]
  3. CALCIUM CARBONATE [Concomitant]
  4. PROTONIX [Concomitant]
  5. ROBITUSSIN [Concomitant]
  6. NEOSYNEPHRINE [Concomitant]

REACTIONS (1)
  - BLOOD GLUCOSE DECREASED [None]
